FAERS Safety Report 15368686 (Version 3)
Quarter: 2018Q4

REPORT INFORMATION
  Report Type: Report from Study
  Country: IT (occurrence: IT)
  Receive Date: 20180911
  Receipt Date: 20181005
  Transmission Date: 20190204
  Serious: Yes (Congenital Anomaly, Other)
  Sender: FDA-Public Use
  Company Number: IT-AMGEN-ITANI2018110158

PATIENT
  Sex: Female
  Weight: 2.31 kg

DRUGS (4)
  1. DIBASE [Concomitant]
     Active Substance: CHOLECALCIFEROL
     Indication: EXPOSURE DURING PREGNANCY
     Dosage: 10 GTT, WEEKLY
     Route: 064
     Dates: start: 20130911, end: 20141001
  2. ETANERCEPT [Suspect]
     Active Substance: ETANERCEPT
     Indication: EXPOSURE DURING PREGNANCY
     Dosage: 50 MG, CYCLIC (EVERY 2 WEEKS)
     Route: 064
     Dates: start: 20120713, end: 20131229
  3. TACHIPIRINA [Concomitant]
     Active Substance: ACETAMINOPHEN
     Indication: EXPOSURE DURING PREGNANCY
     Dosage: 1 DF, AS NEEDED
     Route: 064
     Dates: start: 20110701, end: 20160810
  4. MEDROL [Concomitant]
     Active Substance: METHYLPREDNISOLONE
     Indication: EXPOSURE DURING PREGNANCY
     Dosage: 4 MG, QD
     Route: 064
     Dates: start: 20121029

REACTIONS (3)
  - Trisomy 21 [Unknown]
  - Small for dates baby [Unknown]
  - Maternal exposure during pregnancy [Unknown]
